FAERS Safety Report 19205060 (Version 1)
Quarter: 2021Q2

REPORT INFORMATION
  Report Type: Spontaneous
  Country: US (occurrence: US)
  Receive Date: 20210430
  Receipt Date: 20210430
  Transmission Date: 20210717
  Serious: Yes (Death)
  Sender: FDA-Public Use
  Company Number: None

PATIENT
  Age: 74 Year
  Sex: Male

DRUGS (1)
  1. TEMOZOLOMIDE CAP 20MG [Suspect]
     Active Substance: TEMOZOLOMIDE
     Dosage: OTHER DOSE:160,MG;OTHER FREQUENCY:OTHER;?
     Route: 048
     Dates: start: 202103, end: 202104

REACTIONS (1)
  - Glioblastoma [None]

NARRATIVE: CASE EVENT DATE: 20210420
